FAERS Safety Report 8956863 (Version 1)
Quarter: 2012Q4

REPORT INFORMATION
  Report Type: 
  Country: DE (occurrence: DE)
  Receive Date: 20121210
  Receipt Date: 20121210
  Transmission Date: 20130627
  Serious: Yes (Life-Threatening, Hospitalization)
  Sender: FDA-Public Use
  Company Number: DE-MYLANLABS-2012S1024562

PATIENT
  Sex: Male
  Weight: 66 kg

DRUGS (5)
  1. BACLOFEN [Suspect]
     Indication: MYELITIS
     Dosage: daily dose: 10 Mg millgram(s) every Days
     Route: 048
     Dates: start: 201205, end: 20120711
  2. PANTOZOL [Concomitant]
     Indication: PRODUCT USED FOR UNKNOWN INDICATION
     Dosage: daily dose: 80 Mg millgram(s) every Days
     Route: 048
     Dates: end: 20120710
  3. DELIX [Concomitant]
     Indication: PRODUCT USED FOR UNKNOWN INDICATION
     Dosage: daily dose: 2.5 Mg millgram(s) every Days
     Route: 048
     Dates: end: 20120710
  4. TAMSULOSIN [Concomitant]
     Indication: PRODUCT USED FOR UNKNOWN INDICATION
     Dosage: daily dose: 0.4 Mg millgram(s) every Days
     Route: 048
     Dates: end: 20120710
  5. CEFUROXIME [Concomitant]
     Indication: PRODUCT USED FOR UNKNOWN INDICATION
     Dosage: daily dose: 1000 Mg millgram(s) every Days
     Route: 048
     Dates: end: 20120708

REACTIONS (1)
  - Hepatitis fulminant [Unknown]
